FAERS Safety Report 4545263-7 (Version None)
Quarter: 2005Q1

REPORT INFORMATION
  Report Type: 
  Country: None (occurrence: None)
  Receive Date: 20050105
  Receipt Date: 20041229
  Transmission Date: 20050727
  Serious: Yes (Hospitalization)
  Sender: FDA-Public Use
  Company Number: DE-JNJFOC-20041207601

PATIENT

DRUGS (8)
  1. DURAGESIC [Suspect]
     Indication: PAIN
     Route: 062
  2. SEVREDOL [Concomitant]
     Indication: PAIN
     Route: 049
  3. ACETAMINOPHEN [Concomitant]
     Indication: PAIN
     Route: 065
  4. MOVICOL [Concomitant]
     Route: 049
  5. MOVICOL [Concomitant]
     Route: 049
  6. MOVICOL [Concomitant]
     Route: 049
  7. MOVICOL [Concomitant]
     Indication: CONSTIPATION
     Route: 049
  8. LAXOBERAL [Concomitant]
     Indication: CONSTIPATION
     Dosage: 10 DROPS.
     Route: 049

REACTIONS (1)
  - STERNAL FRACTURE [None]
